FAERS Safety Report 5117754-1 (Version None)
Quarter: 2006Q3

REPORT INFORMATION
  Report Type: 
  Country: None (occurrence: None)
  Receive Date: 20060926
  Receipt Date: 20060905
  Transmission Date: 20061208
  Serious: Yes (Life-Threatening, Hospitalization, Other)
  Sender: FDA-Public Use
  Company Number: BE200606003660

PATIENT
  Age: 80 Year
  Sex: Male

DRUGS (8)
  1. DULOXETINE HYDROCHLORIDE(DULOXETINE HYDROCHLORIDE) CAPSULE [Suspect]
     Indication: DEPRESSION
     Dosage: 60 MG, DAILY (1/D), BUCCAL
     Route: 002
     Dates: start: 20060607, end: 20060608
  2. MOTENS (LACIDIPINE) [Concomitant]
  3. PLAVIX [Concomitant]
  4. CRESTOR [Concomitant]
  5. MOXON (MOXONIDINE) [Concomitant]
  6. GLICLAZIDE (GLICLAZIDE) [Concomitant]
  7. PANTOPRAZOLE SODIUM [Concomitant]
  8. EFEXOR  /USA/ (VENLAFAXINE HYDROCHLORIDE) [Concomitant]

REACTIONS (6)
  - COMA [None]
  - FALL [None]
  - INJURY [None]
  - LOSS OF CONSCIOUSNESS [None]
  - SUBARACHNOID HAEMORRHAGE [None]
  - SUBDURAL HAEMATOMA [None]
